FAERS Safety Report 5218926-8 (Version None)
Quarter: 2007Q1

REPORT INFORMATION
  Report Type: 
  Country: None (occurrence: None)
  Receive Date: 20070125
  Receipt Date: 20070117
  Transmission Date: 20070707
  Serious: Yes (Other)
  Sender: FDA-Public Use
  Company Number: US-AVENTIS-200710435US

PATIENT
  Sex: Male

DRUGS (2)
  1. TAXOTERE [Suspect]
  2. NEULASTA [Suspect]
     Indication: NEUTROPENIA

REACTIONS (2)
  - NEUTROPENIA [None]
  - WHITE BLOOD CELL COUNT INCREASED [None]
